FAERS Safety Report 18260373 (Version 1)
Quarter: 2020Q3

REPORT INFORMATION
  Report Type: Other
  Country: US (occurrence: US)
  Receive Date: 20200914
  Receipt Date: 20200914
  Transmission Date: 20201103
  Serious: No
  Sender: FDA-Public Use
  Company Number: US-AMAG PHARMACEUTICALS, INC.-AMAG202002993

PATIENT
  Age: 25 Year
  Sex: Female
  Weight: 63.11 kg

DRUGS (1)
  1. MAKENA [Suspect]
     Active Substance: HYDROXYPROGESTERONE CAPROATE
     Indication: PREMATURE DELIVERY
     Route: 058
     Dates: start: 202007

REACTIONS (4)
  - Injection site extravasation [Unknown]
  - Injection site haemorrhage [Unknown]
  - Product administration error [Unknown]
  - Injection site pain [Unknown]

NARRATIVE: CASE EVENT DATE: 20200827
